FAERS Safety Report 4796428-0 (Version None)
Quarter: 2005Q3

REPORT INFORMATION
  Report Type: 
  Country: None (occurrence: None)
  Receive Date: 20050916
  Receipt Date: 20041208
  Transmission Date: 20060218
  Serious: Yes (Other)
  Sender: FDA-Public Use
  Company Number: US-JNJFOC-20040903739

PATIENT
  Sex: Female

DRUGS (7)
  1. TOPAMAX [Suspect]
     Dosage: ORAL
     Route: 048
  2. EX-LAX (YELLOW PHENOLPHTHALEIN) [Concomitant]
  3. LORAZEPAM [Concomitant]
  4. SEROQUEL [Concomitant]
  5. NEFAZODONE HCL [Concomitant]
  6. TRAZONE(TRAZODONE) [Concomitant]
  7. PHENOBARBITAL TAB [Concomitant]

REACTIONS (2)
  - CONVULSION [None]
  - LOSS OF CONSCIOUSNESS [None]
